FAERS Safety Report 10363457 (Version 1)
Quarter: 2014Q3

REPORT INFORMATION
  Report Type: Spontaneous
  Country: CA (occurrence: CA)
  Receive Date: 20140805
  Receipt Date: 20140805
  Transmission Date: 20150326
  Serious: Yes (Other)
  Sender: FDA-Public Use
  Company Number: CA-GLAXOSMITHKLINE-A1083794A

PATIENT
  Age: 51 Year
  Sex: Female

DRUGS (6)
  1. TYKERB [Suspect]
     Active Substance: LAPATINIB DITOSYLATE
     Indication: BREAST CANCER
     Route: 065
     Dates: start: 201202
  2. HERCEPTIN [Suspect]
     Active Substance: TRASTUZUMAB
     Indication: BREAST CANCER
     Route: 065
  3. CAELYX [Suspect]
     Active Substance: DOXORUBICIN HYDROCHLORIDE
     Indication: BREAST CANCER
     Route: 065
  4. THIO-TEPA S OPHTHALMIC [Suspect]
     Active Substance: THIOTEPA
     Indication: BREAST CANCER
     Route: 065
  5. XELODA [Suspect]
     Active Substance: CAPECITABINE
     Indication: BREAST CANCER
     Route: 065
     Dates: start: 201202
  6. NAVELBINE [Suspect]
     Active Substance: VINORELBINE TARTRATE
     Indication: BREAST CANCER
     Route: 065

REACTIONS (3)
  - Palliative care [Not Recovered/Not Resolved]
  - Malignant neoplasm progression [None]
  - Breast cancer metastatic [Not Recovered/Not Resolved]
